FAERS Safety Report 8266396 (Version 2)
Quarter: 2013Q2

REPORT INFORMATION
  Report Type: Spontaneous
  Country: US (occurrence: None)
  Receive Date: 20111121
  Receipt Date: 20121113
  Transmission Date: 20140414
  Serious: Yes (Other)
  Sender: FDA-Public Use
  Company Number: 2010026898

PATIENT
  Age: 43 Year
  Sex: Female
  Weight: 78.47 kg

DRUGS (2)
  1. BERINERT [Suspect]
     Indication: HEREDITARY ANGIOEDEMA
     Dosage: (DAILY DOSAGE = 1000
     Route: 042
     Dates: start: 20100904
  2. DANAZOL [Concomitant]

REACTIONS (3)
  - VISUAL IMPAIRMENT [None]
  - VISUAL FIELD DEFECT [None]
  - HEADACHE [None]
